FAERS Safety Report 8933405 (Version 4)
Quarter: 2013Q1

REPORT INFORMATION
  Report Type: Report from Study
  Country: FI (occurrence: FI)
  Receive Date: 20121128
  Receipt Date: 20130320
  Transmission Date: 20140127
  Serious: Yes (Hospitalization, Other)
  Sender: FDA-Public Use
  Company Number: FI-TEVA-372165USA

PATIENT
  Age: 73 Year
  Sex: Male

DRUGS (3)
  1. TREANDA [Suspect]
     Indication: MANTLE CELL LYMPHOMA
     Dosage: CYCLIC
     Route: 042
     Dates: start: 20120801, end: 20121106
  2. LENALIDOMIDE [Suspect]
     Indication: MANTLE CELL LYMPHOMA
     Dosage: IN CYCLE 2
     Dates: start: 20120801, end: 20121106
  3. RITUXIMAB [Suspect]
     Indication: MANTLE CELL LYMPHOMA
     Dosage: REGIMEN #1
     Dates: start: 20120801, end: 20121106

REACTIONS (3)
  - Hepatic failure [Recovered/Resolved with Sequelae]
  - Hepatotoxicity [Recovered/Resolved with Sequelae]
  - Blood alkaline phosphatase increased [Recovered/Resolved with Sequelae]
